FAERS Safety Report 18394503 (Version 1)
Quarter: 2020Q4

REPORT INFORMATION
  Report Type: Spontaneous
  Country: DE (occurrence: DE)
  Receive Date: 20201017
  Receipt Date: 20201017
  Transmission Date: 20210114
  Serious: Yes (Hospitalization, Other)
  Sender: FDA-Public Use
  Company Number: NVSC2020DE275281

PATIENT
  Age: 82 Year
  Sex: Female
  Weight: 93 kg

DRUGS (11)
  1. CARBOPLATIN. [Suspect]
     Active Substance: CARBOPLATIN
     Indication: OVARIAN CANCER
  2. CAELYX [Suspect]
     Active Substance: DOXORUBICIN HYDROCHLORIDE
     Indication: OVARIAN CANCER
  3. CAELYX [Suspect]
     Active Substance: DOXORUBICIN HYDROCHLORIDE
     Indication: METASTASES TO PERITONEUM
     Dosage: 6 ZYKLEN CARBOPLATIN AUC 5 D1 IN KOMBINATION MIT CAELYX 20 D1 Q28D
     Route: 042
     Dates: start: 20200218, end: 20200729
  4. NOVALGIN [Concomitant]
     Indication: PRODUCT USED FOR UNKNOWN INDICATION
     Dosage: 4 DF (BEI BEDARF 1-1-1-1 AS NECESSARY)
     Route: 065
  5. CARBOPLATIN. [Suspect]
     Active Substance: CARBOPLATIN
     Indication: METASTASES TO PERITONEUM
     Dosage: 6 ZYKLEN CARBOPLATIN AUC 5 D1 IN KOMBINATION MIT CAELYX 20 D1 Q28D
     Route: 042
     Dates: start: 20200218, end: 20200729
  6. NIRAPARIB [Suspect]
     Active Substance: NIRAPARIB
     Indication: OVARIAN CANCER
     Dosage: 300 MG, QD
     Route: 042
     Dates: start: 20200826
  7. ELIQUIS [Concomitant]
     Active Substance: APIXABAN
     Indication: PRODUCT USED FOR UNKNOWN INDICATION
     Dosage: 5 MG, Q12H (1-0-1)
     Route: 065
  8. AMIODARON [Concomitant]
     Active Substance: AMIODARONE
     Indication: PRODUCT USED FOR UNKNOWN INDICATION
     Dosage: 200 MG, QD (1-0-0)
     Route: 065
  9. VIGANTOL [Concomitant]
     Indication: OSTEOPOROSIS
     Dosage: 1000 IU, QD (VIGANTOL 1000 IE 0-0-1 1X TGL)
     Route: 065
  10. NIRAPARIB [Suspect]
     Active Substance: NIRAPARIB
     Dosage: UNK
     Route: 048
  11. TORASEMID [Concomitant]
     Active Substance: TORSEMIDE
     Indication: PRODUCT USED FOR UNKNOWN INDICATION
     Dosage: 5 MG, Q12H (TORASEMID 10 MG 1/2-0-1/2)
     Route: 065

REACTIONS (1)
  - Bone marrow failure [Not Recovered/Not Resolved]

NARRATIVE: CASE EVENT DATE: 20200921
